FAERS Safety Report 25705544 (Version 1)
Quarter: 2025Q3

REPORT INFORMATION
  Report Type: Spontaneous
  Country: US (occurrence: None)
  Receive Date: 20250819
  Receipt Date: 20250819
  Transmission Date: 20251021
  Serious: Yes (unspecified)
  Sender: FDA-CTU
  Company Number: None

PATIENT
  Age: 55 Year
  Sex: Female
  Weight: 101.7 kg

DRUGS (8)
  1. ZEPBOUND [Suspect]
     Active Substance: TIRZEPATIDE
     Indication: Obesity
     Route: 030
     Dates: start: 20250525, end: 20250731
  2. Levi thyroxine 125 ?g once daily [Concomitant]
  3. Vitamin D 6000 international units 5 to 6 times weekly [Concomitant]
  4. triamcinolone 0.05% cream twice daily when eczema flaring [Concomitant]
  5. Desonide cream once daily to face one eczema flaring [Concomitant]
  6. Minecraft 180 mg twice daily as needed for itching [Concomitant]
  7. Benadryl 25 mg as needed for itching [Concomitant]
  8. Women^s multivitamin once daily [Concomitant]

REACTIONS (1)
  - Pancreatitis [None]

NARRATIVE: CASE EVENT DATE: 20250807
